FAERS Safety Report 5700826-8 (Version None)
Quarter: 2008Q2

REPORT INFORMATION
  Report Type: 
  Country: None (occurrence: None)
  Receive Date: 20080410
  Receipt Date: 20080328
  Transmission Date: 20081010
  Serious: Yes (Hospitalization)
  Sender: FDA-Public Use
  Company Number: BE-AMGEN-UK272472

PATIENT
  Sex: Male
  Weight: 55.5 kg

DRUGS (1)
  1. PALIFERMIN [Suspect]
     Indication: MUCOSAL INFLAMMATION
     Route: 042
     Dates: start: 20080229

REACTIONS (2)
  - ANOREXIA [None]
  - FATIGUE [None]
